FAERS Safety Report 8336211-2 (Version None)
Quarter: 2012Q2

REPORT INFORMATION
  Report Type: 
  Country: None (occurrence: None)
  Receive Date: 20120504
  Receipt Date: 20120430
  Transmission Date: 20120825
  Serious: Yes (Death)
  Sender: FDA-Public Use
  Company Number: US-CELGENEUS-163-21880-12031462

PATIENT
  Sex: Female

DRUGS (2)
  1. REVLIMID [Suspect]
     Dosage: 151MG/25MG
     Route: 048
     Dates: start: 20100801
  2. REVLIMID [Suspect]
     Indication: MULTIPLE MYELOMA
     Dosage: 15 MILLIGRAM
     Route: 048
     Dates: start: 20090501

REACTIONS (6)
  - MULTIPLE MYELOMA [None]
  - PNEUMONIA [None]
  - FATIGUE [None]
  - DIARRHOEA [None]
  - ARTHRALGIA [None]
  - DISEASE PROGRESSION [None]
